FAERS Safety Report 15358063 (Version 1)
Quarter: 2018Q3

REPORT INFORMATION
  Report Type: Spontaneous
  Country: JP (occurrence: JP)
  Receive Date: 20180906
  Receipt Date: 20180906
  Transmission Date: 20181010
  Serious: Yes (Other)
  Sender: FDA-Public Use
  Company Number: PHJP2018JP015317

PATIENT
  Age: 68 Year
  Sex: Male

DRUGS (4)
  1. HYALEIN [Concomitant]
     Active Substance: HYALURONATE SODIUM
     Indication: PRODUCT USED FOR UNKNOWN INDICATION
     Dosage: UNK UNK, QID
     Route: 047
     Dates: start: 20101014
  2. MUCOSTA [Concomitant]
     Active Substance: REBAMIPIDE
     Indication: PRODUCT USED FOR UNKNOWN INDICATION
     Dosage: UNK UNK, QID
     Route: 047
     Dates: start: 20170609
  3. AZORGA COMBINATION OPHTHALMIC SUSPENSION [Suspect]
     Active Substance: BRINZOLAMIDE\TIMOLOL MALEATE
     Indication: OCULAR HYPERTENSION
     Dosage: UNK UNK, BID
     Route: 047
     Dates: start: 20160818, end: 20180813
  4. AZORGA COMBINATION OPHTHALMIC SUSPENSION [Suspect]
     Active Substance: BRINZOLAMIDE\TIMOLOL MALEATE
     Dosage: UNK UNK, BID
     Route: 047
     Dates: start: 20160818, end: 20180827

REACTIONS (4)
  - Eye irritation [Recovered/Resolved]
  - Punctate keratitis [Recovering/Resolving]
  - Foreign body sensation in eyes [Recovered/Resolved]
  - Injury corneal [Unknown]

NARRATIVE: CASE EVENT DATE: 20180608
